FAERS Safety Report 14566341 (Version 1)
Quarter: 2018Q1

REPORT INFORMATION
  Report Type: Spontaneous
  Country: NO (occurrence: NO)
  Receive Date: 20180223
  Receipt Date: 20180223
  Transmission Date: 20180509
  Serious: Yes (Hospitalization)
  Sender: FDA-Public Use
  Company Number: NO-CIPLA LTD.-2018NO05332

PATIENT

DRUGS (6)
  1. ESCITALOPRAM [Suspect]
     Active Substance: ESCITALOPRAM OXALATE
     Indication: DEPRESSION
     Dosage: 5 MG, ONCE IN A DAY
     Route: 048
  2. PIROXICAM. [Interacting]
     Active Substance: PIROXICAM
     Indication: PAIN
     Dosage: 1 TABLET A DAY AS REQUIRED. USED LATELY
     Route: 048
  3. ZOLPIDEM [Concomitant]
     Active Substance: ZOLPIDEM\ZOLPIDEM TARTRATE
     Indication: INSOMNIA
     Dosage: 1-2 TABLETS AS REQUIRED IN THE EVENING
     Route: 048
  4. MICARDISPLUS [Concomitant]
     Active Substance: HYDROCHLOROTHIAZIDE\TELMISARTAN
     Indication: HYPERTENSION
     Dosage: UNIT DOSE: 80 MG TELMISARTAN + 12.5MG HYDROCHLOROTIAZIDE,DAILY
     Route: 048
  5. SOBRIL [Concomitant]
     Active Substance: OXAZEPAM
     Indication: ANXIETY
     Dosage: 1 TABLET AS REQUIRED, MAXIMUM 3 TIMES PER DAY
     Route: 048
  6. CODEINE PHOSPHATE W/PARACETAMOL [Concomitant]
     Active Substance: ACETAMINOPHEN\CODEINE PHOSPHATE
     Indication: PAIN
     Dosage: UNIT DOSE= 400 MG PARACETAMOL+ 30 MG CODEINE 2 TABLETS 3 TIMES A DAY ()
     Route: 048

REACTIONS (2)
  - Drug interaction [Recovering/Resolving]
  - Gastrointestinal haemorrhage [Recovering/Resolving]

NARRATIVE: CASE EVENT DATE: 20180111
